FAERS Safety Report 5200026-4 (Version None)
Quarter: 2007Q1

REPORT INFORMATION
  Report Type: 
  Country: None (occurrence: None)
  Receive Date: 20070105
  Receipt Date: 20070102
  Transmission Date: 20070707
  Serious: Yes (Death, Hospitalization)
  Sender: FDA-Public Use
  Company Number: US-JNJFOC-20070100434

PATIENT
  Sex: Male

DRUGS (8)
  1. PREZISTA [Suspect]
     Indication: HIV INFECTION
     Route: 048
  2. NORVIR [Concomitant]
     Indication: HIV INFECTION
     Route: 065
  3. VIREAD [Concomitant]
     Indication: HIV INFECTION
     Route: 065
  4. ZERIT [Concomitant]
     Indication: HIV INFECTION
     Route: 065
  5. COZAAR [Concomitant]
     Route: 065
  6. LEVOTHYROXINE SODIUM [Concomitant]
     Route: 065
  7. ALTACE [Concomitant]
     Route: 065
  8. MEPRON [Concomitant]
     Dosage: 1 DOSE = 750/5CC
     Route: 065

REACTIONS (1)
  - DEATH [None]
